FAERS Safety Report 13466846 (Version 1)
Quarter: 2017Q2

REPORT INFORMATION
  Report Type: Spontaneous
  Country: US (occurrence: US)
  Receive Date: 20170420
  Receipt Date: 20170420
  Transmission Date: 20170830
  Serious: No
  Sender: FDA-Public Use
  Company Number: None

PATIENT
  Age: 61 Year
  Sex: Male

DRUGS (1)
  1. BUPRENORPHINE/NALOXONE [Suspect]
     Active Substance: BUPRENORPHINE\NALOXONE
     Indication: DRUG USE DISORDER
     Dosage: 1 TAB BID SUBLINGUAL
     Route: 060
     Dates: start: 20161202

REACTIONS (2)
  - Withdrawal syndrome [None]
  - Drug effect decreased [None]

NARRATIVE: CASE EVENT DATE: 20161202
